FAERS Safety Report 11812948 (Version 1)
Quarter: 2015Q4

REPORT INFORMATION
  Report Type: Report from Study
  Country: US (occurrence: US)
  Receive Date: 20151209
  Receipt Date: 20151209
  Transmission Date: 20160305
  Serious: No
  Sender: FDA-Public Use
  Company Number: US-AMGEN-USASL2015130480

PATIENT
  Age: 31 Year
  Sex: Female

DRUGS (1)
  1. ENBREL [Suspect]
     Active Substance: ETANERCEPT
     Indication: RHEUMATOID ARTHRITIS
     Dosage: 50 MG, QWK
     Route: 065
     Dates: start: 20151117

REACTIONS (7)
  - Fatigue [Unknown]
  - Nausea [Unknown]
  - Injection site mass [Recovered/Resolved]
  - Pain [Unknown]
  - Headache [Unknown]
  - Injection site reaction [Unknown]
  - Injection site induration [Unknown]

NARRATIVE: CASE EVENT DATE: 201511
